FAERS Safety Report 12576681 (Version 2)
Quarter: 2016Q4

REPORT INFORMATION
  Report Type: Spontaneous
  Country: US (occurrence: US)
  Receive Date: 20160720
  Receipt Date: 20161019
  Transmission Date: 20170207
  Serious: No
  Sender: FDA-Public Use
  Company Number: US-OTSUKA-2016_008045

PATIENT
  Age: 31 Year
  Sex: Female

DRUGS (4)
  1. REXULTI [Suspect]
     Active Substance: BREXPIPRAZOLE
     Indication: ADJUVANT THERAPY
     Dosage: 0.5 MG, QD
     Route: 048
     Dates: start: 20160313, end: 20160315
  2. REXULTI [Suspect]
     Active Substance: BREXPIPRAZOLE
     Indication: MAJOR DEPRESSION
     Dosage: 0.5 MG, QD
     Route: 048
     Dates: start: 20160406
  3. CYMBALTA [Concomitant]
     Active Substance: DULOXETINE HYDROCHLORIDE
     Indication: PRODUCT USED FOR UNKNOWN INDICATION
     Dosage: UNK
     Route: 065
     Dates: end: 201603
  4. REXULTI [Suspect]
     Active Substance: BREXPIPRAZOLE
     Indication: DEPRESSION

REACTIONS (5)
  - Fall [Recovered/Resolved]
  - Muscular weakness [Recovered/Resolved]
  - Off label use [Unknown]
  - Stress [Recovered/Resolved]
  - Depression [Recovered/Resolved]

NARRATIVE: CASE EVENT DATE: 20160315
